FAERS Safety Report 20627697 (Version 1)
Quarter: 2022Q1

REPORT INFORMATION
  Report Type: Spontaneous
  Country: US (occurrence: US)
  Receive Date: 20220323
  Receipt Date: 20220323
  Transmission Date: 20220424
  Serious: No
  Sender: FDA-Public Use
  Company Number: US-PFIZER INC-2021708275

PATIENT
  Age: 82 Year
  Sex: Female
  Weight: 44.45 kg

DRUGS (1)
  1. EUCRISA [Suspect]
     Active Substance: CRISABOROLE
     Indication: Erythema
     Dosage: APPLY THIN LAYER TO AREAS OF REDNESS ON THE FACE (BOTH CHEEKS) TWICE DAILY AS NEEDED
     Dates: start: 20210519

REACTIONS (3)
  - Application site erythema [Not Recovered/Not Resolved]
  - Condition aggravated [Not Recovered/Not Resolved]
  - Off label use [Unknown]
